FAERS Safety Report 6724774-X (Version None)
Quarter: 2010Q2

REPORT INFORMATION
  Report Type: 
  Country: None (occurrence: None)
  Receive Date: 20100513
  Receipt Date: 20100505
  Transmission Date: 20101027
  Serious: Yes (Hospitalization)
  Sender: FDA-Public Use
  Company Number: US-BAYER-201021686NA

PATIENT
  Age: 63 Year
  Sex: Male

DRUGS (1)
  1. SORAFENIB [Suspect]
     Indication: THYROID CANCER
     Dosage: TOTAL DAILY DOSE: 400 MG  UNIT DOSE: 200 MG
     Route: 048
     Dates: start: 20090224, end: 20091123

REACTIONS (2)
  - ADRENAL INSUFFICIENCY [None]
  - TROPONIN T INCREASED [None]
